FAERS Safety Report 24937511 (Version 1)
Quarter: 2025Q1

REPORT INFORMATION
  Report Type: Spontaneous
  Country: CA (occurrence: CA)
  Receive Date: 20250206
  Receipt Date: 20250206
  Transmission Date: 20250408
  Serious: Yes (Other)
  Sender: GE HEALTHCARE
  Company Number: CA-GE HEALTHCARE-2025CSU001115

PATIENT
  Age: 35 Year
  Sex: Female

DRUGS (2)
  1. OMNIPAQUE [Suspect]
     Active Substance: IOHEXOL
     Indication: Computerised tomogram
     Route: 040
  2. OMNIPAQUE [Suspect]
     Active Substance: IOHEXOL
     Indication: Scan with contrast

REACTIONS (4)
  - Fluid replacement [Unknown]
  - Throat irritation [Unknown]
  - Urticaria [Unknown]
  - Erythema [Unknown]
